FAERS Safety Report 7513703-7 (Version None)
Quarter: 2011Q2

REPORT INFORMATION
  Report Type: 
  Country: None (occurrence: None)
  Receive Date: 20110531
  Receipt Date: 20110530
  Transmission Date: 20111010
  Serious: Yes (Hospitalization)
  Sender: FDA-Public Use
  Company Number: IT-SANOFI-AVENTIS-2011SA024961

PATIENT
  Age: 76 Year
  Sex: Female

DRUGS (1)
  1. PLAVIX [Suspect]
     Indication: CORONARY ANGIOPLASTY
     Route: 048
     Dates: start: 20090601, end: 20110414

REACTIONS (1)
  - IN-STENT ARTERIAL RESTENOSIS [None]
